FAERS Safety Report 4824111-1 (Version None)
Quarter: 2005Q4

REPORT INFORMATION
  Report Type: 
  Country: None (occurrence: None)
  Receive Date: 20051109
  Receipt Date: 20051005
  Transmission Date: 20060501
  Serious: Yes (Disabling)
  Sender: FDA-Public Use
  Company Number: US-AMGEN-US153252

PATIENT
  Sex: Female

DRUGS (3)
  1. ENBREL [Suspect]
     Indication: PSORIATIC ARTHROPATHY
     Route: 058
     Dates: start: 20050722, end: 20051005
  2. REMICADE [Suspect]
     Dates: start: 20000830, end: 20050722
  3. METHOTREXATE [Concomitant]
     Route: 048

REACTIONS (3)
  - ANTIPHOSPHOLIPID SYNDROME [None]
  - BLINDNESS [None]
  - RETINAL ARTERY OCCLUSION [None]
